FAERS Safety Report 8059563-X (Version None)
Quarter: 2012Q1

REPORT INFORMATION
  Report Type: 
  Country: None (occurrence: None)
  Receive Date: 20120120
  Receipt Date: 20120110
  Transmission Date: 20120608
  Serious: Yes (Other)
  Sender: FDA-Public Use
  Company Number: US-BAYER-2011-038251

PATIENT
  Age: 24 Year
  Sex: Female
  Weight: 120.18 kg

DRUGS (6)
  1. TRIAMTERENE [Concomitant]
     Dosage: UNK UNK, QD
     Route: 048
  2. TRAMADOL HCL [Concomitant]
     Dosage: 50 MG, UNK
     Route: 048
  3. HYDROCODONE BITARTRATE [Concomitant]
     Dosage: UNK UNK, PRN
     Route: 048
  4. HYDROCORTISONE [Concomitant]
     Dosage: 25 MG, BID
     Route: 054
  5. CHLORDIAZEPOXIDE [Concomitant]
  6. YAZ [Suspect]
     Dosage: UNK
     Route: 048
     Dates: start: 20080501, end: 20090401

REACTIONS (10)
  - MALAISE [None]
  - DYSMENORRHOEA [None]
  - CHOLECYSTECTOMY [None]
  - SCAR [None]
  - BILIARY DYSKINESIA [None]
  - MENSTRUATION IRREGULAR [None]
  - ABNORMAL WEIGHT GAIN [None]
  - IRRITABLE BOWEL SYNDROME [None]
  - PAIN [None]
  - EMOTIONAL DISTRESS [None]
